FAERS Safety Report 10152853 (Version 1)
Quarter: 2014Q2

REPORT INFORMATION
  Report Type: Spontaneous
  Country: US (occurrence: US)
  Receive Date: 20140505
  Receipt Date: 20140505
  Transmission Date: 20141212
  Serious: No
  Sender: FDA-Public Use
  Company Number: US-ASTRAZENECA-2013SE66477

PATIENT
  Sex: Female

DRUGS (1)
  1. PRILOSEC OTC [Suspect]
     Route: 048

REACTIONS (5)
  - Pain in extremity [Unknown]
  - Stress [Unknown]
  - Onychoclasis [Unknown]
  - Condition aggravated [Unknown]
  - Dyspepsia [Unknown]
